FAERS Safety Report 16475101 (Version 1)
Quarter: 2019Q2

REPORT INFORMATION
  Report Type: Spontaneous
  Country: US (occurrence: US)
  Receive Date: 20190515
  Receipt Date: 20190515
  Transmission Date: 20190711
  Serious: Yes (Death)
  Sender: FDA-Public Use
  Company Number: None

PATIENT
  Age: 84 Year
  Sex: Male

DRUGS (1)
  1. WARFARIN [Suspect]
     Active Substance: WARFARIN
     Indication: ATRIAL FIBRILLATION
     Route: 048
     Dates: start: 20180816, end: 20180817

REACTIONS (5)
  - Aphasia [None]
  - Leg amputation [None]
  - Cerebrovascular accident [None]
  - Asthenia [None]
  - Erythema [None]

NARRATIVE: CASE EVENT DATE: 20180830
